FAERS Safety Report 17852061 (Version 1)
Quarter: 2020Q2

REPORT INFORMATION
  Report Type: Spontaneous
  Country: US (occurrence: US)
  Receive Date: 20200602
  Receipt Date: 20200602
  Transmission Date: 20200714
  Serious: No
  Sender: FDA-Public Use
  Company Number: US-BAYER-2020-092181

PATIENT
  Age: 68 Year
  Sex: Male

DRUGS (2)
  1. NUBEQA [Suspect]
     Active Substance: DAROLUTAMIDE
     Indication: PROSTATE CANCER
     Dosage: 600 MG, BID
     Route: 048
     Dates: start: 202003
  2. NUBEQA [Suspect]
     Active Substance: DAROLUTAMIDE
     Indication: PROSTATE CANCER
     Dosage: 600 MG, BID (TWO PILLS IN THE MORNING, TWO PILLS AT NIGHT)
     Route: 048
     Dates: start: 201911, end: 202002

REACTIONS (2)
  - Pain in extremity [None]
  - Rash [None]

NARRATIVE: CASE EVENT DATE: 202002
